FAERS Safety Report 4834042-9 (Version None)
Quarter: 2005Q4

REPORT INFORMATION
  Report Type: 
  Country: None (occurrence: None)
  Receive Date: 20051122
  Receipt Date: 20051108
  Transmission Date: 20060501
  Serious: Yes (Death)
  Sender: FDA-Public Use
  Company Number: CN-KINGPHARMUSA00001-K200501464

PATIENT
  Age: 22 Year
  Sex: Male

DRUGS (4)
  1. KETALAR [Suspect]
     Dates: start: 20000101, end: 20000101
  2. ALCOHOL [Suspect]
     Dates: start: 20000101, end: 20000101
  3. METHYLENEDIOXYAMPHETAMINE [Suspect]
     Dates: start: 20000101, end: 20000101
  4. EPHEDRINE [Suspect]
     Dosage: UNK, UNK
     Dates: start: 20000101, end: 20000101

REACTIONS (1)
  - ROAD TRAFFIC ACCIDENT [None]
